FAERS Safety Report 11062690 (Version 3)
Quarter: 2015Q4

REPORT INFORMATION
  Report Type: Spontaneous
  Country: US (occurrence: US)
  Receive Date: 20150424
  Receipt Date: 20151124
  Transmission Date: 20160304
  Serious: Yes (Hospitalization)
  Sender: FDA-Public Use
  Company Number: US-BAYER-2015-162326

PATIENT
  Age: 26 Year
  Sex: Female
  Weight: 59.86 kg

DRUGS (2)
  1. MIRENA [Suspect]
     Active Substance: LEVONORGESTREL
     Indication: CONTRACEPTION
     Dosage: 20 MCG/24HR, CONT
     Route: 015
     Dates: start: 200711, end: 201208
  2. MIRENA [Suspect]
     Active Substance: LEVONORGESTREL
     Indication: CONTRACEPTION
     Dosage: 20 MCG/24HR, CONT
     Route: 015
     Dates: start: 20130828, end: 20140709

REACTIONS (14)
  - Uterine perforation [None]
  - Injury [None]
  - Abdominal pain lower [None]
  - Pelvic pain [None]
  - Procedural pain [None]
  - Abdominal pain [None]
  - Depression [None]
  - Device issue [None]
  - Emotional distress [None]
  - Back pain [None]
  - Abdominal discomfort [None]
  - Device difficult to use [None]
  - Pelvic adhesions [None]
  - Scar [None]

NARRATIVE: CASE EVENT DATE: 201309
